FAERS Safety Report 6160351-X (Version None)
Quarter: 2009Q2

REPORT INFORMATION
  Report Type: 
  Country: None (occurrence: None)
  Receive Date: 20090415
  Receipt Date: 20090415
  Transmission Date: 20091009
  Serious: Yes (Disabling, Other)
  Sender: FDA-Public Use
  Company Number: None

PATIENT
  Age: 49 Year
  Sex: Female
  Weight: 156.491 kg

DRUGS (1)
  1. CIPROFLAXACIN [Suspect]
     Indication: SINUSITIS
     Dosage: 500 MG EVERY 12 HOURS PO
     Route: 048
     Dates: start: 20090408, end: 20090414

REACTIONS (6)
  - AGEUSIA [None]
  - ARTHRALGIA [None]
  - FATIGUE [None]
  - HEADACHE [None]
  - PAROSMIA [None]
  - SWELLING FACE [None]
